FAERS Safety Report 5305697-X (Version None)
Quarter: 2007Q2

REPORT INFORMATION
  Report Type: 
  Country: None (occurrence: None)
  Receive Date: 20070424
  Receipt Date: 20070412
  Transmission Date: 20071010
  Serious: Yes (Hospitalization)
  Sender: FDA-Public Use
  Company Number: GBWYE443512APR07

PATIENT
  Age: 63 Year
  Sex: Female

DRUGS (2)
  1. ENBREL [Suspect]
     Indication: DRUG USE FOR UNKNOWN INDICATION
     Dosage: 50 MG FREQUENCY NOT REPORTED
     Route: 058
     Dates: start: 20061101
  2. METHOTREXATE [Concomitant]

REACTIONS (1)
  - PNEUMONIA [None]
